FAERS Safety Report 5214482-9 (Version None)
Quarter: 2007Q1

REPORT INFORMATION
  Report Type: 
  Country: None (occurrence: None)
  Receive Date: 20070119
  Receipt Date: 20070119
  Transmission Date: 20070707
  Serious: Yes (Hospitalization)
  Sender: FDA-Public Use
  Company Number: None

PATIENT
  Sex: Male
  Weight: 76.2043 kg

DRUGS (2)
  1. GEMCITABINE [Suspect]
     Indication: PLEURAL MESOTHELIOMA
     Dosage: EVERY 14 DAYS - 1000MG/M2 - IV
     Route: 042
     Dates: start: 20061227, end: 20070111
  2. OXALIPLATIN [Suspect]
     Indication: PLEURAL MESOTHELIOMA
     Dosage: EVERY 14 DAY - 100MG/M2 - IV
     Route: 042
     Dates: start: 20061227, end: 20070111

REACTIONS (3)
  - ANAEMIA [None]
  - ANOREXIA [None]
  - FATIGUE [None]
